FAERS Safety Report 5160402-5 (Version None)
Quarter: 2006Q4

REPORT INFORMATION
  Report Type: 
  Country: None (occurrence: None)
  Receive Date: 20061121
  Receipt Date: 20061114
  Transmission Date: 20070319
  Serious: Yes (Death, Hospitalization)
  Sender: FDA-Public Use
  Company Number: 163-21880-06110187

PATIENT
  Age: 85 Year
  Sex: Male

DRUGS (2)
  1. REVLIMID [Suspect]
     Indication: MYELODYSPLASTIC SYNDROME
     Dosage: 10 MG, 2 IN 1, ORAL; SEE IMAGE
     Route: 048
     Dates: start: 20060508, end: 20060801
  2. REVLIMID [Suspect]
     Indication: MYELODYSPLASTIC SYNDROME
     Dosage: 10 MG, 2 IN 1, ORAL; SEE IMAGE
     Route: 048
     Dates: start: 20060901, end: 20060901

REACTIONS (5)
  - ANAEMIA [None]
  - BLOOD DISORDER [None]
  - DYSPNOEA [None]
  - GENERAL PHYSICAL HEALTH DETERIORATION [None]
  - PNEUMONIA [None]
